FAERS Safety Report 19047706 (Version 1)
Quarter: 2021Q1

REPORT INFORMATION
  Report Type: Spontaneous
  Country: US (occurrence: US)
  Receive Date: 20210323
  Receipt Date: 20210323
  Transmission Date: 20210420
  Serious: Yes (Other)
  Sender: FDA-Public Use
  Company Number: US-GLAXOSMITHKLINE-US2021GSK068029

PATIENT
  Sex: Male

DRUGS (18)
  1. ZANTAC [Suspect]
     Active Substance: RANITIDINE HYDROCHLORIDE
     Dosage: 150 MG, WE
     Route: 065
     Dates: start: 201001, end: 201501
  2. ZANTAC [Suspect]
     Active Substance: RANITIDINE HYDROCHLORIDE
     Indication: ABDOMINAL DISCOMFORT
     Dosage: 25 MG BOTH
     Route: 065
     Dates: start: 201001, end: 201501
  3. RANITIDINE. [Suspect]
     Active Substance: RANITIDINE
     Indication: ABDOMINAL DISCOMFORT
     Dosage: 75 MG  BOTH
     Route: 065
     Dates: start: 201001, end: 201501
  4. RANITIDINE. [Suspect]
     Active Substance: RANITIDINE
     Dosage: UNK
  5. ZANTAC [Suspect]
     Active Substance: RANITIDINE HYDROCHLORIDE
     Indication: ABDOMINAL DISCOMFORT
     Dosage: 25 MG BOTH
     Route: 065
     Dates: start: 201001, end: 201501
  6. RANITIDINE. [Suspect]
     Active Substance: RANITIDINE
     Dosage: 300 UNK, WE
     Route: 065
     Dates: start: 201001, end: 201501
  7. RANITIDINE. [Suspect]
     Active Substance: RANITIDINE
     Indication: ABDOMINAL DISCOMFORT
     Dosage: 75 MG  BOTH
     Route: 065
     Dates: start: 201001, end: 201501
  8. RANITIDINE. [Suspect]
     Active Substance: RANITIDINE
     Dosage: 300 UNK, WE
     Route: 065
     Dates: start: 201001, end: 201501
  9. RANITIDINE. [Suspect]
     Active Substance: RANITIDINE
     Dosage: 150  MG BOTH
     Route: 065
     Dates: start: 201001, end: 201501
  10. RANITIDINE. [Suspect]
     Active Substance: RANITIDINE
     Indication: ABDOMINAL DISCOMFORT
     Dosage: 150  MG BOTH
     Route: 065
     Dates: start: 201001, end: 201501
  11. RANITIDINE. [Suspect]
     Active Substance: RANITIDINE
     Dosage: 300 UNK, WE
     Route: 065
     Dates: start: 201001, end: 201501
  12. ZANTAC [Suspect]
     Active Substance: RANITIDINE HYDROCHLORIDE
     Dosage: 75 MG BOTH
     Route: 065
     Dates: start: 201001, end: 201501
  13. RANITIDINE CAPSULE [Suspect]
     Active Substance: RANITIDINE
     Indication: ABDOMINAL DISCOMFORT
     Dosage: 150  MG BOTH
     Route: 065
     Dates: start: 201001, end: 201501
  14. RANITIDINE CAPSULE [Suspect]
     Active Substance: RANITIDINE
     Dosage: 75 MG  BOTH
     Route: 065
     Dates: start: 201001, end: 201501
  15. ZANTAC [Suspect]
     Active Substance: RANITIDINE HYDROCHLORIDE
     Dosage: 150 MG, WE
     Route: 065
     Dates: start: 201001, end: 201501
  16. RANITIDINE. [Suspect]
     Active Substance: RANITIDINE
     Dosage: 150  MG BOTH
     Route: 065
     Dates: start: 201001, end: 201501
  17. ZANTAC [Suspect]
     Active Substance: RANITIDINE HYDROCHLORIDE
     Dosage: 75 MG BOTH
     Route: 065
     Dates: start: 201001, end: 201501
  18. RANITIDINE CAPSULE [Suspect]
     Active Substance: RANITIDINE
     Dosage: GM003 BOTH
     Route: 065
     Dates: start: 201001, end: 201501

REACTIONS (1)
  - Prostate cancer [Unknown]
